FAERS Safety Report 7138018-0 (Version None)
Quarter: 2010Q4

REPORT INFORMATION
  Report Type: 
  Country: None (occurrence: None)
  Receive Date: 20101206
  Receipt Date: 20101126
  Transmission Date: 20110411
  Serious: Yes (Other)
  Sender: FDA-Public Use
  Company Number: FR-PFIZER INC-2010158221

PATIENT
  Age: 85 Year
  Sex: Female

DRUGS (2)
  1. LYRICA [Suspect]
     Dosage: 50 MG IN THE MORNING AND 75 MG IN THE EVENING
  2. CLASTOBAN [Concomitant]
     Indication: HYPERCALCAEMIA
     Route: 041

REACTIONS (2)
  - SUFFOCATION FEELING [None]
  - SWOLLEN TONGUE [None]
